FAERS Safety Report 9557244 (Version 1)
Quarter: 2013Q3

REPORT INFORMATION
  Report Type: Spontaneous
  Country: US (occurrence: None)
  Receive Date: 20130726
  Receipt Date: 20130726
  Transmission Date: 20140515
  Serious: Yes (Hospitalization)
  Sender: FDA-Public Use
  Company Number: UTC-032976

PATIENT
  Age: 62 Year
  Sex: Female
  Weight: 79.54 kg

DRUGS (2)
  1. REMODULIN [Suspect]
     Indication: COR PULMONALE CHRONIC
     Dosage: 1.8 UG/KG (0.00125 UG/KG, 1 IN 1 MIN), SUBCUTANEOUS
     Dates: start: 20130506, end: 20130516
  2. ADCIRCA (TADALAFIL) [Concomitant]

REACTIONS (6)
  - Infection [None]
  - Abdominal pain [None]
  - Back pain [None]
  - Vomiting [None]
  - Headache [None]
  - Nausea [None]
